FAERS Safety Report 12544776 (Version 3)
Quarter: 2016Q3

REPORT INFORMATION
  Report Type: Spontaneous
  Country: US (occurrence: US)
  Receive Date: 20160711
  Receipt Date: 20160823
  Transmission Date: 20161109
  Serious: No
  Sender: FDA-Public Use
  Company Number: US-PFIZER INC-2016332461

PATIENT
  Age: 62 Year
  Sex: Female
  Weight: 77.11 kg

DRUGS (3)
  1. LEXAPRO [Concomitant]
     Active Substance: ESCITALOPRAM OXALATE
     Indication: DEPRESSION
     Dosage: 75 MG
  2. LYRICA [Suspect]
     Active Substance: PREGABALIN
     Indication: ARTHRALGIA
  3. LYRICA [Suspect]
     Active Substance: PREGABALIN
     Indication: FIBROMYALGIA
     Dosage: 75 MG, UNK
     Route: 048

REACTIONS (9)
  - Disorientation [Unknown]
  - Intentional product misuse [Unknown]
  - Thyroid hormones increased [Unknown]
  - Dizziness [Recovering/Resolving]
  - Drug intolerance [Unknown]
  - Malaise [Recovering/Resolving]
  - Headache [Unknown]
  - Feeling drunk [Unknown]
  - Fall [Unknown]
